FAERS Safety Report 4599575-1 (Version None)
Quarter: 2005Q1

REPORT INFORMATION
  Report Type: 
  Country: None (occurrence: None)
  Receive Date: 20050303
  Receipt Date: 20050131
  Transmission Date: 20050727
  Serious: Yes (Hospitalization)
  Sender: FDA-Public Use
  Company Number: Q05-001

PATIENT
  Age: 50 Year
  Sex: Male
  Weight: 96 kg

DRUGS (17)
  1. SAMARIUM 153 LEXIDRONAM [Suspect]
     Indication: PROSTATE CANCER
     Dosage: 1 MCI/KG
     Dates: start: 20050127
  2. TAXOTERE [Suspect]
     Indication: PROSTATE CANCER
     Dosage: 25 MG/M2 ONCE PER WEEK
     Dates: start: 20050127
  3. XOPENEX [Concomitant]
  4. PULMICORT [Concomitant]
  5. PULMICORT INH. [Concomitant]
  6. SEREVENT INH. [Concomitant]
  7. CELEBREX [Concomitant]
  8. METHADONE [Concomitant]
  9. DILAUDID [Concomitant]
  10. ARICEPT [Concomitant]
  11. ENULOSE [Concomitant]
  12. FLEXERIL [Concomitant]
  13. FLOMAX [Concomitant]
  14. METOCLOPRAMIDE [Concomitant]
  15. ACTIQ [Concomitant]
  16. SYNTHROID [Concomitant]
  17. UNIPHYL [Concomitant]

REACTIONS (6)
  - BLOOD URINE PRESENT [None]
  - DISEASE PROGRESSION [None]
  - FAECAL INCONTINENCE [None]
  - SPINAL COLUMN STENOSIS [None]
  - SPINAL CORD COMPRESSION [None]
  - URINARY INCONTINENCE [None]
